FAERS Safety Report 5829958-0 (Version None)
Quarter: 2008Q3

REPORT INFORMATION
  Report Type: 
  Country: None (occurrence: None)
  Receive Date: 20080731
  Receipt Date: 20080731
  Transmission Date: 20090109
  Serious: Yes (Life-Threatening, Hospitalization)
  Sender: FDA-Public Use
  Company Number: None

PATIENT
  Age: 57 Year

DRUGS (1)
  1. RITUXIMAB [Suspect]
     Indication: LYMPHOMA
     Dosage: 600 MG ONCE IV
     Route: 042
     Dates: start: 20080711, end: 20080711

REACTIONS (5)
  - HEPATIC FAILURE [None]
  - HEPATITIS ALCOHOLIC [None]
  - HYPERBILIRUBINAEMIA [None]
  - MENTAL STATUS CHANGES [None]
  - SEPSIS [None]
